FAERS Safety Report 4424619-7 (Version None)
Quarter: 2004Q3

REPORT INFORMATION
  Report Type: 
  Country: None (occurrence: None)
  Receive Date: 20040809
  Receipt Date: 20040727
  Transmission Date: 20050211
  Serious: Yes (Other)
  Sender: FDA-Public Use
  Company Number: 2004051739

PATIENT
  Age: 77 Year
  Sex: Male
  Weight: 62.1428 kg

DRUGS (3)
  1. LIPITOR [Suspect]
     Indication: BLOOD CHOLESTEROL INCREASED
     Dosage: 10 MG (10 MG, 1 IN 1 D), ORAL
     Route: 048
     Dates: start: 20030901, end: 20040301
  2. OLMESARTAN MEDOXOMIL (OLMASARTAN MEDOXOMIL) [Concomitant]
  3. ASPIRIN [Concomitant]

REACTIONS (19)
  - ALOPECIA [None]
  - ARTHRITIS [None]
  - AURICULAR SWELLING [None]
  - BLISTER [None]
  - CHILLS [None]
  - DIZZINESS [None]
  - DRUG ERUPTION [None]
  - DYSPNOEA EXERTIONAL [None]
  - ERYTHEMA [None]
  - EYE SWELLING [None]
  - OEDEMA PERIPHERAL [None]
  - PULMONARY OEDEMA [None]
  - PYREXIA [None]
  - RASH PRURITIC [None]
  - RESPIRATORY ARREST [None]
  - SWELLING [None]
  - SWELLING FACE [None]
  - SWOLLEN TONGUE [None]
  - WEIGHT FLUCTUATION [None]
